FAERS Safety Report 20641271 (Version 1)
Quarter: 2022Q1

REPORT INFORMATION
  Report Type: Spontaneous
  Country: PL (occurrence: PL)
  Receive Date: 20220328
  Receipt Date: 20220328
  Transmission Date: 20220423
  Serious: Yes (Hospitalization)
  Sender: FDA-Public Use
  Company Number: PL-AMGEN-POLSP2022042325

PATIENT
  Age: 40 Year

DRUGS (2)
  1. CINACALCET [Suspect]
     Active Substance: CINACALCET
     Indication: Parathyroid tumour benign
     Dosage: UNK
     Route: 065
  2. FUROSEMIDE [Concomitant]
     Active Substance: FUROSEMIDE
     Indication: Parathyroid tumour benign
     Route: 065

REACTIONS (5)
  - Hypophosphataemia [Unknown]
  - Jugular vein thrombosis [Unknown]
  - Blood parathyroid hormone decreased [Unknown]
  - Hypercalcaemia [Recovered/Resolved]
  - Post procedural haematoma [Unknown]
